FAERS Safety Report 19581409 (Version 1)
Quarter: 2021Q3

REPORT INFORMATION
  Report Type: Spontaneous
  Country: US (occurrence: US)
  Receive Date: 20210719
  Receipt Date: 20210719
  Transmission Date: 20211014
  Serious: No
  Sender: FDA-Public Use
  Company Number: None

PATIENT
  Age: 60 Year
  Sex: Male
  Weight: 81 kg

DRUGS (3)
  1. AMLODIPINE [Concomitant]
     Active Substance: AMLODIPINE BESYLATE
  2. NEUTROGENA BEACH DEFENSE WATER AND SUN PROTECTION SUNSCREEN BROAD SPECTRUM SPF 30 [Suspect]
     Active Substance: AVOBENZONE\HOMOSALATE\OCTISALATE\OCTOCRYLENE
     Indication: PROPHYLAXIS AGAINST SOLAR RADIATION
     Dosage: ?          OTHER FREQUENCY:APPLY EVERY 2 HOUR;?
     Route: 061
     Dates: start: 20210714, end: 20210714
  3. ADVIL [Concomitant]
     Active Substance: IBUPROFEN

REACTIONS (4)
  - Application site rash [None]
  - Swelling [None]
  - Pruritus [None]
  - Rash [None]

NARRATIVE: CASE EVENT DATE: 20210715
